FAERS Safety Report 7911528-1 (Version None)
Quarter: 2011Q4

REPORT INFORMATION
  Report Type: 
  Country: None (occurrence: None)
  Receive Date: 20111114
  Receipt Date: 20111031
  Transmission Date: 20120403
  Serious: No
  Sender: FDA-Public Use
  Company Number: US-ELI_LILLY_AND_COMPANY-US201108001009

PATIENT
  Sex: Female
  Weight: 49.887 kg

DRUGS (19)
  1. CYMBALTA [Suspect]
     Indication: DEPRESSION
     Dosage: 60 MG, BID
     Route: 048
  2. BACLOFEN [Concomitant]
  3. KETOPROFEN [Concomitant]
  4. SYNTHROID [Concomitant]
  5. ZONISAMIDE [Concomitant]
  6. FEXOFENADINE HCL [Concomitant]
  7. AMLODIPINE BESYLATE [Concomitant]
  8. VITAMIN D [Concomitant]
  9. BOTOX [Concomitant]
  10. CLONAZEPAM [Concomitant]
  11. SINGULAIR [Concomitant]
  12. VITAMIN B-12 [Concomitant]
  13. ONDANSETRON [Concomitant]
  14. INDOMETHACIN [Concomitant]
  15. OMEPRAZOLE [Concomitant]
  16. VOLTAREN                                /SCH/ [Concomitant]
  17. PROMETHAZINE [Concomitant]
  18. MAGNESIUM [Concomitant]
  19. ROPINIROLE HYDROCHLORIDE [Concomitant]

REACTIONS (3)
  - INSOMNIA [None]
  - HEADACHE [None]
  - NAUSEA [None]
